FAERS Safety Report 14202169 (Version 3)
Quarter: 2018Q1

REPORT INFORMATION
  Report Type: Report from Study
  Country: US (occurrence: US)
  Receive Date: 20171117
  Receipt Date: 20180316
  Transmission Date: 20180508
  Serious: Yes (Death, Other)
  Sender: FDA-Public Use
  Company Number: PHEH2017US036577

PATIENT
  Sex: Female

DRUGS (1)
  1. RECLAST [Suspect]
     Active Substance: ZOLEDRONIC ACID
     Indication: OSTEOPOROSIS
     Dosage: UNK (ONE INFUSION)
     Route: 042
     Dates: start: 20170714

REACTIONS (11)
  - Crying [Unknown]
  - Eating disorder [Unknown]
  - Groin pain [Unknown]
  - Musculoskeletal pain [Unknown]
  - Pain [Unknown]
  - Bone neoplasm [Fatal]
  - Dysuria [Unknown]
  - Screaming [Unknown]
  - Gait disturbance [Unknown]
  - Insomnia [Unknown]
  - Arthralgia [Unknown]
